FAERS Safety Report 21721098 (Version 1)
Quarter: 2022Q4

REPORT INFORMATION
  Report Type: Spontaneous
  Country: US (occurrence: US)
  Receive Date: 20221213
  Receipt Date: 20221213
  Transmission Date: 20230112
  Serious: No
  Sender: FDA-Public Use
  Company Number: US-AMGEN-USASP2022213848

PATIENT
  Age: 33 Year
  Sex: Female
  Weight: 66 kg

DRUGS (5)
  1. NEUPOGEN [Suspect]
     Active Substance: FILGRASTIM
     Indication: Aplastic anaemia
     Dosage: UNK
     Route: 065
     Dates: start: 2022, end: 2022
  2. BIOTIN [Concomitant]
     Active Substance: BIOTIN
  3. COENZYME Q10 [Concomitant]
     Active Substance: DIETARY SUPPLEMENT\UBIDECARENONE
  4. VITAMIN B [Concomitant]
     Active Substance: VITAMIN B
     Dosage: QD
  5. MAGNESIUM [Concomitant]
     Active Substance: MAGNESIUM

REACTIONS (1)
  - Therapeutic product effect incomplete [Not Recovered/Not Resolved]

NARRATIVE: CASE EVENT DATE: 20220101
